FAERS Safety Report 25486392 (Version 3)
Quarter: 2025Q4

REPORT INFORMATION
  Report Type: Report from Study
  Country: EU (occurrence: EU)
  Receive Date: 20250627
  Receipt Date: 20251201
  Transmission Date: 20260117
  Serious: Yes (Hospitalization)
  Sender: ABBVIE
  Company Number: EU-ABBVIE-6341084

PATIENT
  Age: 56 Year
  Sex: Female
  Weight: 113 kg

DRUGS (1)
  1. SKYRIZI [Suspect]
     Active Substance: RISANKIZUMAB-RZAA
     Indication: Psoriasis
     Route: 058
     Dates: start: 20190719

REACTIONS (2)
  - Arterial stenosis [Recovered/Resolved with Sequelae]
  - Skin discolouration [Unknown]

NARRATIVE: CASE EVENT DATE: 20250211
